FAERS Safety Report 15223350 (Version 2)
Quarter: 2018Q3

REPORT INFORMATION
  Report Type: Report from Study
  Country: KR (occurrence: KR)
  Receive Date: 20180731
  Receipt Date: 20180806
  Transmission Date: 20181010
  Serious: No
  Sender: FDA-Public Use
  Company Number: KR-B.I. PHARMACEUTICALS,INC./RIDGEFIELD-2017-BI-052159

PATIENT
  Age: 63 Year
  Sex: Female

DRUGS (21)
  1. DEXAMETHASONE. [Concomitant]
     Active Substance: DEXAMETHASONE
     Indication: PRURITUS
     Route: 065
     Dates: start: 20170814, end: 20170903
  2. LASIX [Concomitant]
     Active Substance: FUROSEMIDE
     Indication: HYPERTENSION
     Route: 065
     Dates: start: 20170727, end: 20170727
  3. KALIMATE [Concomitant]
     Active Substance: CALCIUM POLYSTYRENE SULFONATE
     Indication: HYPERKALAEMIA
     Route: 065
     Dates: start: 20170724, end: 20170724
  4. KALIMATE [Concomitant]
     Active Substance: CALCIUM POLYSTYRENE SULFONATE
     Route: 065
     Dates: start: 20170904, end: 20170904
  5. CALCIUM GLUCONATE. [Concomitant]
     Active Substance: CALCIUM GLUCONATE
     Indication: HYPERKALAEMIA
     Route: 065
     Dates: start: 20170904, end: 20170904
  6. DUPHALAC [Concomitant]
     Active Substance: LACTULOSE
     Indication: HYPERKALAEMIA
     Route: 065
     Dates: start: 20170904, end: 20170904
  7. CANDEMORE [Concomitant]
     Indication: ISCHAEMIC CARDIOMYOPATHY
     Route: 065
     Dates: start: 20170726, end: 20170903
  8. LASIX [Concomitant]
     Active Substance: FUROSEMIDE
     Route: 065
     Dates: start: 20170728, end: 20170903
  9. ALDACTONE [Concomitant]
     Active Substance: SPIRONOLACTONE
     Indication: HYPERTENSION
     Route: 065
     Dates: start: 20170814, end: 20170903
  10. OCUFLOX [Concomitant]
     Active Substance: OFLOXACIN
     Indication: ACUTE KIDNEY INJURY
  11. ASPIRIN. [Concomitant]
     Active Substance: ASPIRIN
     Indication: ISCHAEMIC CARDIOMYOPATHY
     Route: 065
     Dates: start: 20170726, end: 20170821
  12. LIPILOU [Concomitant]
     Indication: ISCHAEMIC CARDIOMYOPATHY
     Route: 065
     Dates: start: 20170726, end: 20170903
  13. KALIMATE [Concomitant]
     Active Substance: CALCIUM POLYSTYRENE SULFONATE
     Dosage: POWDER
     Route: 065
     Dates: start: 20170904, end: 20170904
  14. HUMULIN R [Concomitant]
     Active Substance: INSULIN HUMAN
     Indication: HYPERKALAEMIA
     Route: 065
     Dates: start: 20170904, end: 20170905
  15. GILOTRIF [Suspect]
     Active Substance: AFATINIB
     Route: 065
     Dates: start: 20170828, end: 20170904
  16. OCUFLOX [Concomitant]
     Active Substance: OFLOXACIN
     Indication: EYE SWELLING
     Route: 065
     Dates: start: 20170904, end: 20170905
  17. DEXTROSE IN HALF SALINE CHOONGWAE [Concomitant]
     Indication: HYPERKALAEMIA
     Route: 065
     Dates: start: 20170904, end: 20170905
  18. DUPHALAC EASY [Concomitant]
     Indication: HYPERKALAEMIA
     Route: 065
     Dates: start: 20170904, end: 20170904
  19. GILOTRIF [Suspect]
     Active Substance: AFATINIB
     Indication: NON-SMALL CELL LUNG CANCER
     Route: 065
     Dates: start: 20170814, end: 20170827
  20. NITROGLYCERINE [Concomitant]
     Active Substance: NITROGLYCERIN
     Indication: HYPERKALAEMIA
     Route: 065
     Dates: start: 20170904, end: 20170904
  21. CODEINE PHOSPHATE [Concomitant]
     Active Substance: CODEINE PHOSPHATE
     Indication: COUGH
     Route: 065
     Dates: start: 20170814, end: 20170903

REACTIONS (5)
  - Decreased appetite [Recovered/Resolved]
  - Pruritus [Recovered/Resolved]
  - Asthenia [Unknown]
  - Diarrhoea [Recovered/Resolved]
  - Stomatitis [Recovered/Resolved]

NARRATIVE: CASE EVENT DATE: 20170821
